FAERS Safety Report 22391713 (Version 1)
Quarter: 2023Q2

REPORT INFORMATION
  Report Type: Spontaneous
  Country: TR (occurrence: TR)
  Receive Date: 20230601
  Receipt Date: 20230601
  Transmission Date: 20230722
  Serious: Yes (Death, Other)
  Sender: FDA-Public Use
  Company Number: TR-AJANTA-2023AJA00105

PATIENT
  Age: 63 Year
  Sex: Male

DRUGS (3)
  1. VORICONAZOLE [Suspect]
     Active Substance: VORICONAZOLE
     Indication: Phaeohyphomycotic brain abscess
     Route: 042
  2. AMPHOTERICIN B [Concomitant]
     Active Substance: AMPHOTERICIN B
  3. METRONIDAZOLE [Suspect]
     Active Substance: METRONIDAZOLE
     Indication: Bacterial infection

REACTIONS (5)
  - Hemiplegia [Fatal]
  - Respiratory failure [Fatal]
  - Drug ineffective [Fatal]
  - Anisocoria [Fatal]
  - Pneumonia [Fatal]
